FAERS Safety Report 18215178 (Version 1)
Quarter: 2020Q3

REPORT INFORMATION
  Report Type: Spontaneous
  Country: US (occurrence: US)
  Receive Date: 20200831
  Receipt Date: 20200831
  Transmission Date: 20201103
  Serious: No
  Sender: FDA-Public Use
  Company Number: US-NATCO PHARMA-2020NAT00025

PATIENT
  Sex: Female

DRUGS (1)
  1. OSELTAMIVIR PHOSPHATE. [Suspect]
     Active Substance: OSELTAMIVIR PHOSPHATE
     Dosage: UNK
     Dates: start: 201909

REACTIONS (2)
  - Fatigue [Unknown]
  - Diarrhoea [Unknown]

NARRATIVE: CASE EVENT DATE: 2019
